FAERS Safety Report 9291600 (Version 1)
Quarter: 2013Q2

REPORT INFORMATION
  Report Type: Spontaneous
  Country: US (occurrence: US)
  Receive Date: 20130515
  Receipt Date: 20130515
  Transmission Date: 20140414
  Serious: Yes (Disabling)
  Sender: FDA-Public Use
  Company Number: US-MERCK-1305USA006087

PATIENT
  Age: 59 Year
  Sex: Male

DRUGS (2)
  1. PEGINTRON [Suspect]
     Indication: MALAISE
     Dosage: UNSPECIFIED DOSE, QW, REDIPEN (1 STANDARD DOSE OF 1)
     Route: 058
     Dates: start: 201304
  2. REBETOL [Suspect]

REACTIONS (5)
  - Vomiting [Recovered/Resolved]
  - Fatigue [Recovered/Resolved]
  - Asthenia [Recovered/Resolved]
  - Nausea [Recovered/Resolved]
  - Product quality issue [Unknown]
